FAERS Safety Report 16933863 (Version 1)
Quarter: 2019Q4

REPORT INFORMATION
  Report Type: Spontaneous
  Country: US (occurrence: US)
  Receive Date: 20191018
  Receipt Date: 20191018
  Transmission Date: 20200122
  Serious: No
  Sender: FDA-Public Use
  Company Number: US-BAYER-2019-188017

PATIENT
  Age: 56 Year
  Sex: Male

DRUGS (11)
  1. FLUTICASONE PROPIONATE. [Concomitant]
     Active Substance: FLUTICASONE PROPIONATE
     Indication: ASTHMA
     Dates: start: 20190425
  2. HYDROCODONE [Concomitant]
     Active Substance: HYDROCODONE
     Indication: PAIN
     Dosage: UNK
     Dates: start: 20190409
  3. INCRUSE ELLIPTA [Concomitant]
     Active Substance: UMECLIDINIUM BROMIDE
     Indication: ASTHMA
     Dates: start: 20181226
  4. DRONABINOL. [Concomitant]
     Active Substance: DRONABINOL
     Indication: DECREASED APPETITE
     Dates: start: 20190521
  5. NALOXONE [Concomitant]
     Active Substance: NALOXONE
     Dates: start: 20190525
  6. CLINDAMYCIN PHOSPHATE. [Concomitant]
     Active Substance: CLINDAMYCIN PHOSPHATE
     Dates: start: 20190507
  7. MUPIROCIN. [Concomitant]
     Active Substance: MUPIROCIN
     Indication: PARONYCHIA
     Dosage: UNK
     Dates: start: 20190625
  8. MIRALAX [Suspect]
     Active Substance: POLYETHYLENE GLYCOL 3350
     Indication: CONSTIPATION
     Dosage: 17 G, QD
     Dates: start: 20190425
  9. LURASIDONE [Concomitant]
     Active Substance: LURASIDONE
     Dates: start: 20190228
  10. METRONIDAZOLE. [Concomitant]
     Active Substance: METRONIDAZOLE
     Dates: start: 20190507
  11. DIPHENHYDRAMINE. [Concomitant]
     Active Substance: DIPHENHYDRAMINE
     Dosage: UNK
     Dates: start: 20190507

REACTIONS (1)
  - Diarrhoea [Recovering/Resolving]
